FAERS Safety Report 6607798-2 (Version None)
Quarter: 2010Q1

REPORT INFORMATION
  Report Type: 
  Country: None (occurrence: None)
  Receive Date: 20100225
  Receipt Date: 20100225
  Transmission Date: 20100710
  Serious: Yes (Other)
  Sender: FDA-Public Use
  Company Number: None

PATIENT
  Sex: Male
  Weight: 83.0083 kg

DRUGS (1)
  1. OMEPRAZOLE [Suspect]
     Indication: DYSPEPSIA
     Dosage: 20 MG DAILY PO
     Route: 048
     Dates: start: 20100220, end: 20100223

REACTIONS (2)
  - ABDOMINAL PAIN UPPER [None]
  - PRODUCT SUBSTITUTION ISSUE [None]
